FAERS Safety Report 5134500-6 (Version None)
Quarter: 2006Q4

REPORT INFORMATION
  Report Type: 
  Country: None (occurrence: None)
  Receive Date: 20061023
  Receipt Date: 20061023
  Transmission Date: 20070319
  Serious: No
  Sender: FDA-Public Use
  Company Number: None

PATIENT
  Age: 24 Year
  Sex: Female
  Weight: 59 kg

DRUGS (14)
  1. PROMETHAZINE [Suspect]
     Dosage: 6.25MG  Q4HRS PRN  IV
     Route: 042
     Dates: start: 20061011
  2. OXYCONTIN [Concomitant]
  3. ACETAMINOPHEN [Concomitant]
  4. TYLENOL W/ CODEINE NO. 3 [Concomitant]
  5. BISACODYL [Concomitant]
  6. BUPIVACAINE [Concomitant]
  7. CEFAZOLIN [Concomitant]
  8. BENADRYL [Concomitant]
  9. ESTRADIOL INJ [Concomitant]
  10. FLURAZEPAM [Concomitant]
  11. HYDROMORPHONE HCL [Concomitant]
  12. IBUPROFEN [Concomitant]
  13. ONDANSETRON [Concomitant]
  14. PERCOCET [Concomitant]

REACTIONS (2)
  - INFUSION RELATED REACTION [None]
  - PHLEBITIS [None]
